FAERS Safety Report 12694589 (Version 2)
Quarter: 2016Q3

REPORT INFORMATION
  Report Type: Spontaneous
  Country: CN (occurrence: CN)
  Receive Date: 20160829
  Receipt Date: 20160907
  Transmission Date: 20161109
  Serious: Yes (Hospitalization)
  Sender: FDA-Public Use
  Company Number: CN-ASTRAZENECA-2016SE89179

PATIENT
  Sex: Female

DRUGS (2)
  1. BYETTA [Suspect]
     Active Substance: EXENATIDE
     Indication: DIABETES MELLITUS
     Route: 065
     Dates: start: 20160720, end: 20160725
  2. BYETTA [Suspect]
     Active Substance: EXENATIDE
     Indication: OBESITY
     Route: 065
     Dates: start: 20160720, end: 20160725

REACTIONS (7)
  - Hyperparathyroidism [Unknown]
  - Parathyroid cyst [Unknown]
  - Vomiting [Unknown]
  - Weight decreased [Unknown]
  - Product use issue [Unknown]
  - Reflux gastritis [Unknown]
  - Off label use [Unknown]

NARRATIVE: CASE EVENT DATE: 20160720
